FAERS Safety Report 14995801 (Version 1)
Quarter: 2018Q2

REPORT INFORMATION
  Report Type: Spontaneous
  Country: US (occurrence: US)
  Receive Date: 20180518
  Receipt Date: 20180518
  Transmission Date: 20180711
  Serious: Yes (Life-Threatening)
  Sender: FDA-Public Use
  Company Number: None

PATIENT
  Age: 37 Year
  Sex: Female
  Weight: 91.17 kg

DRUGS (4)
  1. BUPROPION. [Suspect]
     Active Substance: BUPROPION
     Indication: WEIGHT CONTROL
     Dosage: ?          QUANTITY:2 DF DOSAGE FORM;?
     Dates: start: 201712, end: 20180426
  2. FENOFIBRATE. [Concomitant]
     Active Substance: FENOFIBRATE
  3. PANTOPRAZOLE [Concomitant]
     Active Substance: PANTOPRAZOLE
  4. WOMAN VITAMINS [Concomitant]

REACTIONS (8)
  - Panic attack [None]
  - Weight increased [None]
  - Suicidal ideation [None]
  - Constipation [None]
  - Headache [None]
  - Dry mouth [None]
  - Head injury [None]
  - Dizziness [None]

NARRATIVE: CASE EVENT DATE: 20180419
